FAERS Safety Report 24791154 (Version 1)
Quarter: 2024Q4

REPORT INFORMATION
  Report Type: Spontaneous
  Country: US (occurrence: US)
  Receive Date: 20241230
  Receipt Date: 20241230
  Transmission Date: 20250114
  Serious: No
  Sender: CIPLA
  Company Number: US-CIPLA LTD.-2024US11479

PATIENT

DRUGS (1)
  1. BUDESONIDE [Suspect]
     Active Substance: BUDESONIDE
     Indication: Product used for unknown indication
     Dosage: STRENGTH; 0.5/2 MILLIGRAM PER MILLILITRE
     Route: 065

REACTIONS (2)
  - Product use complaint [Unknown]
  - Product label issue [Unknown]
